FAERS Safety Report 23774158 (Version 1)
Quarter: 2024Q2

REPORT INFORMATION
  Report Type: Spontaneous
  Country: NL (occurrence: NL)
  Receive Date: 20240423
  Receipt Date: 20240423
  Transmission Date: 20240716
  Serious: Yes (Hospitalization)
  Sender: FDA-Public Use
  Company Number: None

PATIENT
  Age: 71 Year
  Sex: Female
  Weight: 66 kg

DRUGS (3)
  1. CAPECITABINE [Suspect]
     Active Substance: CAPECITABINE
     Indication: Colon cancer
     Dosage: FO: BRAND NAME NOT SPECIFIED
     Route: 065
     Dates: start: 20240217
  2. CAPECITABINE [Suspect]
     Active Substance: CAPECITABINE
     Indication: Colon cancer
     Route: 065
     Dates: start: 20240217
  3. BEVACIZUMAB [Concomitant]
     Active Substance: BEVACIZUMAB
     Indication: Product used for unknown indication
     Dosage: INFOPL CONC 25MG/ML/ BRAND NAME NOT SPECIFIED
     Route: 065

REACTIONS (1)
  - Mucosal inflammation [Recovering/Resolving]
